FAERS Safety Report 8226891-4 (Version None)
Quarter: 2012Q1

REPORT INFORMATION
  Report Type: 
  Country: None (occurrence: None)
  Receive Date: 20120322
  Receipt Date: 20120314
  Transmission Date: 20120608
  Serious: Yes (Hospitalization, Other)
  Sender: FDA-Public Use
  Company Number: US-BAYER-2011-077190

PATIENT
  Age: 17 Year
  Sex: Female
  Weight: 103 kg

DRUGS (9)
  1. LORTAB [Concomitant]
  2. FLEXERIL [Concomitant]
  3. PROTONIX [Concomitant]
  4. YAZ [Suspect]
     Indication: CONTRACEPTION
     Dosage: UNK
     Dates: start: 20060915, end: 20060922
  5. NAPROSYN [Concomitant]
  6. CRESTOR [Concomitant]
     Dosage: UNK
     Dates: start: 20060101, end: 20110101
  7. TRIAMTEREN HCT [Concomitant]
     Dosage: UNK
     Dates: start: 20060101, end: 20100101
  8. ALLEGRA-D [FEXOFENADINE HYDROCHLORIDE,PSEUDOEPHEDRINE HYDROCHLORID [Concomitant]
     Indication: HYPERSENSITIVITY
     Dosage: UNK
     Dates: start: 20020101, end: 20120101
  9. AMOXIL [Concomitant]

REACTIONS (13)
  - PAIN [None]
  - PALPITATIONS [None]
  - PULMONARY OEDEMA [None]
  - INJURY [None]
  - EMOTIONAL DISTRESS [None]
  - PULMONARY EMBOLISM [None]
  - PLEURITIC PAIN [None]
  - CHEST PAIN [None]
  - MENTAL DISORDER [None]
  - ANXIETY [None]
  - GENERAL PHYSICAL HEALTH DETERIORATION [None]
  - DYSPNOEA [None]
  - ABDOMINAL PAIN UPPER [None]
